FAERS Safety Report 7321357-8 (Version None)
Quarter: 2011Q1

REPORT INFORMATION
  Report Type: 
  Country: None (occurrence: None)
  Receive Date: 20110228
  Receipt Date: 20100310
  Transmission Date: 20110831
  Serious: Yes (Other)
  Sender: FDA-Public Use
  Company Number: US-PFIZER INC-2010034916

PATIENT
  Sex: Male

DRUGS (4)
  1. GEODON [Suspect]
     Indication: MAJOR DEPRESSION
     Dosage: 40 MG, DAILY
     Dates: start: 20090801
  2. ABILIFY [Concomitant]
     Dosage: UNK
  3. ZOLOFT [Concomitant]
     Dosage: UNK
  4. BENADRYL [Concomitant]
     Dosage: UNK

REACTIONS (1)
  - PSYCHOTIC DISORDER [None]
